FAERS Safety Report 21701372 (Version 2)
Quarter: 2022Q4

REPORT INFORMATION
  Report Type: Other
  Country: JP (occurrence: None)
  Receive Date: 20221208
  Receipt Date: 20221219
  Transmission Date: 20230113
  Serious: Yes (Death, Other)
  Sender: FDA-Public Use
  Company Number: JP-Merck Healthcare KGaA-9370807

PATIENT
  Age: 71 Year
  Sex: Female

DRUGS (2)
  1. BAVENCIO [Suspect]
     Active Substance: AVELUMAB
     Indication: Renal cancer metastatic
     Route: 041
  2. INLYTA [Concomitant]
     Active Substance: AXITINIB
     Indication: Renal cancer metastatic

REACTIONS (4)
  - Infection [Fatal]
  - Malignant pleural effusion [Fatal]
  - Status epilepticus [Unknown]
  - Facial spasm [Unknown]
